FAERS Safety Report 7764584-8 (Version None)
Quarter: 2011Q3

REPORT INFORMATION
  Report Type: 
  Country: None (occurrence: None)
  Receive Date: 20110921
  Receipt Date: 20110915
  Transmission Date: 20111222
  Serious: Yes (Other)
  Sender: FDA-Public Use
  Company Number: US-PFIZER INC-2011218678

PATIENT
  Sex: Female
  Weight: 101 kg

DRUGS (3)
  1. VITAMIN D [Concomitant]
     Dosage: 3000 IU, DAILY
  2. LATANOPROST [Suspect]
     Indication: GLAUCOMA
     Dosage: 1 GTT, EACH EYE DAILY
     Route: 047
     Dates: start: 20110101
  3. LISINOPRIL [Concomitant]
     Indication: HYPERTENSION
     Dosage: 40 MG, DAILY

REACTIONS (3)
  - HYPERSENSITIVITY [None]
  - HEADACHE [None]
  - DYSPNOEA [None]
